FAERS Safety Report 9380126 (Version 1)
Quarter: 2013Q3

REPORT INFORMATION
  Report Type: Spontaneous
  Country: US (occurrence: None)
  Receive Date: 20130701
  Receipt Date: 20130701
  Transmission Date: 20140515
  Serious: Yes (Life-Threatening, Other)
  Sender: FDA-Public Use
  Company Number: None

PATIENT
  Age: 51 Year
  Sex: Female
  Weight: 89.8 kg

DRUGS (1)
  1. PACLITAXEL [Suspect]
     Route: 042

REACTIONS (11)
  - Infusion related reaction [None]
  - Dizziness [None]
  - Feeling hot [None]
  - Erythema [None]
  - Erythema [None]
  - Erythema [None]
  - Loss of consciousness [None]
  - Blood pressure systolic increased [None]
  - Heart rate increased [None]
  - Chest discomfort [None]
  - Dyspnoea [None]
